FAERS Safety Report 8581887-8 (Version None)
Quarter: 2012Q3

REPORT INFORMATION
  Report Type: 
  Country: None (occurrence: None)
  Receive Date: 20120809
  Receipt Date: 20120727
  Transmission Date: 20120928
  Serious: Yes (Other)
  Sender: FDA-Public Use
  Company Number: US-ELI_LILLY_AND_COMPANY-US201205001256

PATIENT
  Sex: Female

DRUGS (14)
  1. ASPIRIN [Concomitant]
     Dosage: 81 MG, UNK
  2. FORTEO [Suspect]
     Indication: OSTEOPOROSIS
     Dosage: 20 UG, QD
     Dates: start: 20110901
  3. METOPROLOL TARTRATE [Concomitant]
     Dosage: 25 MG, BID
  4. PLAVIX [Concomitant]
     Dosage: 75 MG, QD
  5. QUINAPRIL [Concomitant]
     Dosage: 40 MG, QD
  6. PRAVASTATIN [Concomitant]
     Dosage: 40 MG, UNK
  7. FORTEO [Suspect]
     Dosage: 20 UG, QD
     Dates: start: 20110901
  8. HUMALOG [Concomitant]
     Indication: DIABETES MELLITUS
     Dosage: 30 U, BID
  9. AMLODIPINE [Concomitant]
     Dosage: 5 MG, QD
  10. FUROSEMIDE [Concomitant]
     Dosage: 20 MG, BID
  11. FORTEO [Suspect]
     Dosage: 20 UG, QD
     Dates: start: 20110901
  12. POTASSIUM CHLORIDE [Concomitant]
     Dosage: 20 MG, QD
  13. ALIGN [Concomitant]
     Dosage: UNK
  14. NITROGLYCERIN [Concomitant]
     Dosage: UNK, PRN

REACTIONS (6)
  - DYSPNOEA [None]
  - ERYTHEMA [None]
  - BACTERIAL INFECTION [None]
  - ARTERIAL OCCLUSIVE DISEASE [None]
  - OEDEMA PERIPHERAL [None]
  - WHEEZING [None]
